FAERS Safety Report 7333351-1 (Version None)
Quarter: 2011Q1

REPORT INFORMATION
  Report Type: 
  Country: None (occurrence: None)
  Receive Date: 20110224
  Receipt Date: 20110217
  Transmission Date: 20110831
  Serious: Yes (Hospitalization, Other)
  Sender: FDA-Public Use
  Company Number: 2011036033

PATIENT
  Age: 48 Year
  Sex: Female

DRUGS (2)
  1. FRAGMIN [Suspect]
     Indication: THROMBOSIS PROPHYLAXIS
     Dosage: 2500 IU, 1X/DAY, SUBCUTANEOUS; 5000IU, 1X/DAY, SUBCUTANEOUS
     Route: 058
     Dates: end: 20110216
  2. FRAGMIN [Suspect]
     Indication: THROMBOSIS PROPHYLAXIS
     Dosage: 2500 IU, 1X/DAY, SUBCUTANEOUS; 5000IU, 1X/DAY, SUBCUTANEOUS
     Route: 058
     Dates: start: 20110201

REACTIONS (4)
  - PULMONARY THROMBOSIS [None]
  - PULMONARY INFARCTION [None]
  - INCORRECT DOSE ADMINISTERED [None]
  - PNEUMONIA [None]
